FAERS Safety Report 9249804 (Version 1)
Quarter: 2013Q2

REPORT INFORMATION
  Report Type: Spontaneous
  Country: IN (occurrence: IN)
  Receive Date: 20130423
  Receipt Date: 20130423
  Transmission Date: 20140414
  Serious: Yes (Death, Other)
  Sender: FDA-Public Use
  Company Number: IN-BAXTER-2013BAX014782

PATIENT
  Age: 50 Year
  Sex: Male

DRUGS (2)
  1. OFLOXACIN INFUSION IP 2MG/ML IN ISOTONIC SALINE [Suspect]
     Indication: SEPSIS
     Route: 042
  2. PIPERACILLIN [Suspect]
     Indication: SEPSIS
     Route: 042

REACTIONS (2)
  - Death [Fatal]
  - Status epilepticus [Unknown]
